FAERS Safety Report 6545074-7 (Version None)
Quarter: 2010Q1

REPORT INFORMATION
  Report Type: 
  Country: None (occurrence: None)
  Receive Date: 20100121
  Receipt Date: 20100112
  Transmission Date: 20100710
  Serious: Yes (Other)
  Sender: FDA-Public Use
  Company Number: US-WYE-H12979510

PATIENT
  Sex: Male
  Weight: 96.25 kg

DRUGS (6)
  1. EFFEXOR [Suspect]
     Indication: DEPRESSION
     Route: 048
     Dates: start: 20020101
  2. WARFARIN [Concomitant]
     Indication: ANTICOAGULANT THERAPY
     Dosage: UNKNOWN
  3. DOXYCYCLINE [Suspect]
     Indication: URINARY RETENTION
     Dosage: UNKNOWN
  4. BUSPIRONE HCL [Concomitant]
     Indication: ANXIETY
     Route: 048
  5. AMBIEN [Suspect]
     Route: 048
  6. CHANTIX [Suspect]
     Indication: EX-TOBACCO USER
     Route: 048
     Dates: start: 20091121

REACTIONS (23)
  - ABDOMINAL DISCOMFORT [None]
  - ABNORMAL DREAMS [None]
  - AGITATION [None]
  - AMNESIA [None]
  - BLOOD CHOLESTEROL INCREASED [None]
  - BLOOD GLUCOSE INCREASED [None]
  - CONFUSIONAL STATE [None]
  - DECREASED ACTIVITY [None]
  - DIARRHOEA [None]
  - DIZZINESS [None]
  - DRUG EFFECT DECREASED [None]
  - EMOTIONAL DISORDER [None]
  - HYPERTENSION [None]
  - IRRITABILITY [None]
  - LOGORRHOEA [None]
  - MALAISE [None]
  - NAUSEA [None]
  - NERVOUSNESS [None]
  - RESTLESSNESS [None]
  - SLEEP DISORDER [None]
  - UNEVALUABLE EVENT [None]
  - URINARY RETENTION [None]
  - URINARY TRACT DISORDER [None]
